FAERS Safety Report 12596360 (Version 1)
Quarter: 2016Q3

REPORT INFORMATION
  Report Type: Spontaneous
  Country: GB (occurrence: GB)
  Receive Date: 20160726
  Receipt Date: 20160726
  Transmission Date: 20161109
  Serious: Yes (Other)
  Sender: FDA-Public Use
  Company Number: GB-TEVA-677623ACC

PATIENT
  Age: 26 Year
  Sex: Female
  Weight: 55 kg

DRUGS (5)
  1. METRONIDAZOLE. [Concomitant]
     Active Substance: METRONIDAZOLE
     Dosage: TO BE TAKEN TWICE DAILY
     Dates: start: 20160704
  2. CEFIXIME. [Concomitant]
     Active Substance: CEFIXIME
     Dosage: ONCE ONLY
     Dates: start: 20160705
  3. COCODAMOL [Concomitant]
     Active Substance: ACETAMINOPHEN\CODEINE PHOSPHATE
     Dosage: TAKE 1 OR 2 4 TIMES/DAY
     Dates: start: 20160704
  4. OFLOXACIN. [Suspect]
     Active Substance: OFLOXACIN
     Route: 065
     Dates: start: 20160705
  5. DOXYCYCLINE. [Concomitant]
     Active Substance: DOXYCYCLINE
     Dosage: TO BE TAKEN TWICE DAILY
     Dates: start: 20160705

REACTIONS (1)
  - Presyncope [Recovered/Resolved]

NARRATIVE: CASE EVENT DATE: 20160705
